FAERS Safety Report 14651297 (Version 2)
Quarter: 2018Q1

REPORT INFORMATION
  Report Type: Spontaneous
  Country: US (occurrence: US)
  Receive Date: 20180316
  Receipt Date: 20180319
  Transmission Date: 20180509
  Serious: No
  Sender: FDA-Public Use
  Company Number: US-BIOGEN-2018BI00542906

PATIENT

DRUGS (1)
  1. TYSABRI [Suspect]
     Active Substance: NATALIZUMAB
     Indication: PRODUCT USED FOR UNKNOWN INDICATION
     Route: 065
     Dates: end: 20170801

REACTIONS (11)
  - Wound dehiscence [Unknown]
  - Dysphagia [Unknown]
  - Gait disturbance [Unknown]
  - Balance disorder [Unknown]
  - Pilonidal cyst [Unknown]
  - Speech disorder [Unknown]
  - Vision blurred [Unknown]
  - Clostridium difficile infection [Unknown]
  - Dysarthria [Unknown]
  - Hypothyroidism [Unknown]
  - Dizziness [Unknown]

NARRATIVE: CASE EVENT DATE: 20150831
